FAERS Safety Report 7001445-6 (Version None)
Quarter: 2010Q3

REPORT INFORMATION
  Report Type: 
  Country: None (occurrence: None)
  Receive Date: 20100920
  Receipt Date: 20091231
  Transmission Date: 20110219
  Serious: No
  Sender: FDA-Public Use
  Company Number: US-ASTRAZENECA-2009SE33725

PATIENT
  Sex: Female
  Weight: 70.3 kg

DRUGS (3)
  1. SEROQUEL XR [Suspect]
     Indication: BIPOLAR DISORDER
     Route: 048
     Dates: start: 20091216, end: 20091216
  2. LAMICTAL [Concomitant]
  3. WELLBUTRIN [Concomitant]

REACTIONS (2)
  - ADVERSE DRUG REACTION [None]
  - SLEEP DISORDER [None]
